FAERS Safety Report 12557699 (Version 1)
Quarter: 2016Q3

REPORT INFORMATION
  Report Type: Spontaneous
  Country: US (occurrence: US)
  Receive Date: 20160714
  Receipt Date: 20160714
  Transmission Date: 20161109
  Serious: No
  Sender: FDA-Public Use
  Company Number: US-CELGENEUS-USA-2016072916

PATIENT
  Age: 58 Year
  Sex: Male

DRUGS (2)
  1. OTEZLA [Suspect]
     Active Substance: APREMILAST
     Indication: PRODUCT USED FOR UNKNOWN INDICATION
     Route: 048
     Dates: start: 20160531
  2. OTEZLA [Suspect]
     Active Substance: APREMILAST
     Route: 048

REACTIONS (1)
  - Tremor [Not Recovered/Not Resolved]

NARRATIVE: CASE EVENT DATE: 20160627
